FAERS Safety Report 12105316 (Version 4)
Quarter: 2016Q1

REPORT INFORMATION
  Report Type: Report from Study
  Country: US (occurrence: AU)
  Receive Date: 20160223
  Receipt Date: 20160328
  Transmission Date: 20160526
  Serious: Yes (Death, Hospitalization)
  Sender: FDA-Public Use
  Company Number: AU-KADMON PHARMACEUTICALS, LLC-KAD201602-000648

PATIENT
  Sex: Female

DRUGS (2)
  1. VIEKIRA PAK [Suspect]
     Active Substance: DASABUVIR\OMBITASVIR\PARITAPREVIR\RITONAVIR
     Indication: HEPATITIS C
     Dosage: AV1 X2 IN MORNING, AV2 X 1, 2 TIMES A DAY; TABLET
     Route: 048
     Dates: end: 20160210
  2. RIBAVIRIN 200 MG [Suspect]
     Active Substance: RIBAVIRIN
     Indication: HEPATITIS C
     Dosage: TABLET
     Route: 048
     Dates: end: 20160210

REACTIONS (4)
  - Hepatic failure [Fatal]
  - Sepsis [Fatal]
  - Yellow skin [Unknown]
  - Blood bilirubin increased [Unknown]
